FAERS Safety Report 20840892 (Version 3)
Quarter: 2022Q2

REPORT INFORMATION
  Report Type: Spontaneous
  Country: US (occurrence: US)
  Receive Date: 20220517
  Receipt Date: 20220621
  Transmission Date: 20220721
  Serious: No
  Sender: FDA-Public Use
  Company Number: US-PFIZER INC-202200685010

PATIENT
  Age: 72 Year
  Sex: Female
  Weight: 74.39 kg

DRUGS (3)
  1. ESTRING [Suspect]
     Active Substance: ESTRADIOL
     Indication: Atrophic vulvovaginitis
     Dosage: UNK (EVERY 3 MONTHS)
     Dates: start: 2017
  2. ESTRING [Suspect]
     Active Substance: ESTRADIOL
     Dosage: UNK (EVERY 2 MONTHS)
     Dates: start: 2021
  3. ESTRING [Suspect]
     Active Substance: ESTRADIOL
     Dosage: UNK (ONE RING EVERY ONE MONTH, WEARS IN VAGINA)
     Route: 067

REACTIONS (4)
  - Therapeutic product effect decreased [Unknown]
  - Condition aggravated [Unknown]
  - Contraindicated product administered [Unknown]
  - Off label use [Unknown]
